FAERS Safety Report 5640187-6 (Version None)
Quarter: 2008Q1

REPORT INFORMATION
  Report Type: 
  Country: None (occurrence: None)
  Receive Date: 20080227
  Receipt Date: 20080129
  Transmission Date: 20080703
  Serious: No
  Sender: FDA-Public Use
  Company Number: US-BAXTER-2008BH000548

PATIENT
  Age: 76 Year
  Sex: Female
  Weight: 89 kg

DRUGS (1)
  1. HEPARIN SODIUM [Suspect]
     Indication: VASCULAR GRAFT
     Route: 042
     Dates: start: 20080111, end: 20080111

REACTIONS (2)
  - COAGULATION TIME SHORTENED [None]
  - HYPOTENSION [None]
